FAERS Safety Report 9852357 (Version 1)
Quarter: 2014Q1

REPORT INFORMATION
  Report Type: Spontaneous
  Country: US (occurrence: None)
  Receive Date: 20140127
  Receipt Date: 20140127
  Transmission Date: 20141002
  Serious: Yes (Other)
  Sender: FDA-Public Use
  Company Number: QSC-2014-0040

PATIENT
  Sex: 0

DRUGS (2)
  1. H.P. ACTHAR GEL (ADRENOCORTICOTROPIC HORMONE) GEL FOR INJECTION, 80U/ML [Suspect]
     Indication: FOCAL SEGMENTAL GLOMERULOSCLEROSIS
  2. CELLCEPT (MYCOPHENOLATE MOFETIL) TABLET [Suspect]
     Route: 048

REACTIONS (1)
  - Brain abscess [None]
